FAERS Safety Report 12374072 (Version 1)
Quarter: 2016Q2

REPORT INFORMATION
  Report Type: Spontaneous
  Country: BR (occurrence: BR)
  Receive Date: 20160517
  Receipt Date: 20160517
  Transmission Date: 20160815
  Serious: Yes (Other)
  Sender: FDA-Public Use
  Company Number: BR-AMGEN-BRASP2016060749

PATIENT
  Age: 59 Year
  Sex: Female

DRUGS (3)
  1. PROLIA [Suspect]
     Active Substance: DENOSUMAB
     Dosage: 1 DF, Q6MO
     Route: 058
     Dates: start: 20160317
  2. OSSEOPROT [Suspect]
     Active Substance: CALCIUM CITRATE MALATE\VITAMIN D
     Indication: OSTEOPOROSIS
     Dosage: 1 DF, BID, TABLET
     Route: 048
     Dates: start: 20160317
  3. PROLIA [Suspect]
     Active Substance: DENOSUMAB
     Indication: OSTEOPOROSIS
     Dosage: USED FOR ONE AND A HALF YEAR (3 DOSES)
     Route: 065

REACTIONS (2)
  - Chest discomfort [Not Recovered/Not Resolved]
  - Angina pectoris [Recovered/Resolved]

NARRATIVE: CASE EVENT DATE: 20160319
